FAERS Safety Report 5336644-2 (Version None)
Quarter: 2007Q2

REPORT INFORMATION
  Report Type: 
  Country: None (occurrence: None)
  Receive Date: 20070529
  Receipt Date: 20070525
  Transmission Date: 20071010
  Serious: Yes (Other)
  Sender: FDA-Public Use
  Company Number: JP-AVENTIS-200711320JP

PATIENT
  Age: 79 Year
  Sex: Male

DRUGS (1)
  1. LASIX [Suspect]
     Dosage: DOSE: 5 TO 10 MG/DAY
     Route: 051
     Dates: start: 20061001, end: 20070525

REACTIONS (1)
  - BLOOD PRESSURE INCREASED [None]
